FAERS Safety Report 6529434-6 (Version None)
Quarter: 2009Q4

REPORT INFORMATION
  Report Type: 
  Country: None (occurrence: None)
  Receive Date: 20091231
  Receipt Date: 20091217
  Transmission Date: 20100525
  Serious: Yes (Life-Threatening, Hospitalization)
  Sender: FDA-Public Use
  Company Number: 2009AL007928

PATIENT
  Age: 53 Year
  Sex: Male

DRUGS (6)
  1. LEVETIRACETAM SODIUM [Suspect]
     Indication: EPILEPSY
     Dosage: 1 GM; BID;
  2. FLECAINIDE [Concomitant]
  3. WARFARIN [Concomitant]
  4. VALPROIC ACID [Concomitant]
  5. LEVOTHYROXINE SODIUM [Concomitant]
  6. ALENDRONIC ACID [Concomitant]

REACTIONS (5)
  - BRADYCARDIA [None]
  - DECREASED APPETITE [None]
  - HYPOTHERMIA [None]
  - METABOLIC DISORDER [None]
  - PANCYTOPENIA [None]
